FAERS Safety Report 5457978-7 (Version None)
Quarter: 2007Q3

REPORT INFORMATION
  Report Type: 
  Country: None (occurrence: None)
  Receive Date: 20070917
  Receipt Date: 20070906
  Transmission Date: 20080115
  Serious: Yes (Other)
  Sender: FDA-Public Use
  Company Number: CHPA2007US09503

PATIENT
  Sex: Male

DRUGS (1)
  1. NICOTINE [Suspect]

REACTIONS (4)
  - CHEST PAIN [None]
  - DYSPNOEA [None]
  - RASH [None]
  - SWELLING [None]
